FAERS Safety Report 10272870 (Version 1)
Quarter: 2014Q3

REPORT INFORMATION
  Report Type: Spontaneous
  Country: US (occurrence: None)
  Receive Date: 20140701
  Receipt Date: 20140701
  Transmission Date: 20150326
  Serious: Yes (Death)
  Sender: FDA-Public Use
  Company Number: None

PATIENT

DRUGS (1)
  1. ABILIFY [Suspect]
     Active Substance: ARIPIPRAZOLE

REACTIONS (5)
  - Dysarthria [None]
  - Loss of consciousness [None]
  - Anaphylactic shock [None]
  - Fall [None]
  - Cardiac arrest [None]

NARRATIVE: CASE EVENT DATE: 20140602
